FAERS Safety Report 26039664 (Version 1)
Quarter: 2025Q4

REPORT INFORMATION
  Report Type: Spontaneous
  Country: US (occurrence: US)
  Receive Date: 20251113
  Receipt Date: 20251113
  Transmission Date: 20260117
  Serious: Yes (Life-Threatening, Hospitalization)
  Sender: ALKEM
  Company Number: None

PATIENT
  Age: 15 Year
  Sex: Male

DRUGS (6)
  1. MYCOPHENOLATE MOFETIL [Suspect]
     Active Substance: MYCOPHENOLATE MOFETIL
     Indication: Immunosuppressant drug therapy
     Dosage: 1620 MILLIGRAM, QD (3 TABLETS IN EVERY MORNING) (540 MG)
     Route: 048
     Dates: start: 2021
  2. MYCOPHENOLATE MOFETIL [Suspect]
     Active Substance: MYCOPHENOLATE MOFETIL
     Dosage: 720 MILLIGRAM, QD (2 TABLET EVERY EVENING) (360 MG)
     Route: 048
     Dates: start: 2021
  3. NIFEDIPINE [Suspect]
     Active Substance: NIFEDIPINE
     Indication: Hypertension
     Dosage: 30 MILLIGRAM
     Route: 065
     Dates: start: 202206
  4. TACROLIMUS [Suspect]
     Active Substance: TACROLIMUS
     Indication: Immunosuppressant drug therapy
     Dosage: 3 MILLIGRAM, BID
     Route: 065
     Dates: start: 2021
  5. PREDNISONE [Suspect]
     Active Substance: PREDNISONE
     Indication: Immunosuppressant drug therapy
     Dosage: 20 MILLIGRAM, QD
     Route: 065
     Dates: start: 2021
  6. THYMOGLOBULIN [Suspect]
     Active Substance: LAPINE T-LYMPHOCYTE IMMUNE GLOBULIN
     Indication: Immunosuppressant drug therapy
     Dosage: 6 MILLIGRAM/KILOGRAM (FOUR DOSES)
     Route: 042
     Dates: start: 2021

REACTIONS (5)
  - Tonsillar hypertrophy [Recovered/Resolved]
  - Sleep-related breathing disorder [Unknown]
  - Gingival hypertrophy [Recovered/Resolved]
  - Weight decreased [Recovered/Resolved]
  - Hypertension [Recovered/Resolved]

NARRATIVE: CASE EVENT DATE: 20230101
